FAERS Safety Report 13305858 (Version 2)
Quarter: 2017Q2

REPORT INFORMATION
  Report Type: Spontaneous
  Country: RO (occurrence: RO)
  Receive Date: 20170308
  Receipt Date: 20170602
  Transmission Date: 20170830
  Serious: Yes (Other)
  Sender: FDA-Public Use
  Company Number: RO-JNJFOC-20170307572

PATIENT
  Age: 47 Year
  Sex: Male
  Weight: 77 kg

DRUGS (7)
  1. SIMVACARD [Concomitant]
     Indication: DYSLIPIDAEMIA
     Route: 065
     Dates: start: 20160201, end: 20170226
  2. GABARAN [Concomitant]
     Indication: DIABETIC NEUROPATHY
     Route: 065
     Dates: start: 20160119, end: 20170220
  3. SIMPONI [Suspect]
     Active Substance: GOLIMUMAB
     Indication: ANKYLOSING SPONDYLITIS
     Route: 058
     Dates: start: 20160119, end: 20161212
  4. DIAPREL [Concomitant]
     Active Substance: GLICLAZIDE
     Indication: DIABETES MELLITUS
     Dosage: 2X60MG
     Route: 065
     Dates: start: 2016, end: 20160226
  5. OMEPRAZOLE. [Concomitant]
     Active Substance: OMEPRAZOLE
     Indication: GASTROINTESTINAL DISORDER THERAPY
     Route: 065
  6. METOPROLOL. [Concomitant]
     Active Substance: METOPROLOL
     Indication: HYPERTENSION
     Route: 065
     Dates: start: 20120102, end: 20170226
  7. PIROXICAM. [Concomitant]
     Active Substance: PIROXICAM
     Indication: SPONDYLITIS
     Route: 065
     Dates: start: 20130601, end: 20170117

REACTIONS (1)
  - Acquired immunodeficiency syndrome [Unknown]

NARRATIVE: CASE EVENT DATE: 20161101
